FAERS Safety Report 9080133 (Version 4)
Quarter: 2014Q2

REPORT INFORMATION
  Report Type: Report from Study
  Country: DE (occurrence: DE)
  Receive Date: 20130130
  Receipt Date: 20140620
  Transmission Date: 20141212
  Serious: Yes (Hospitalization, Other)
  Sender: FDA-Public Use
  Company Number: DE-JNJFOC-20130112232

PATIENT
  Age: 35 Year
  Sex: Female
  Weight: 109 kg

DRUGS (2)
  1. USTEKINUMAB [Suspect]
     Indication: PSORIASIS
     Dosage: TOTAL NUMBER OF INJECTIONS RECEIVED 1
     Route: 058
     Dates: start: 20121126, end: 20121126
  2. METHOTREXATE [Suspect]
     Indication: PSORIASIS
     Route: 058
     Dates: start: 2004, end: 20130109

REACTIONS (2)
  - Pneumonia [Recovered/Resolved]
  - Respiratory tract infection viral [Recovered/Resolved]
